FAERS Safety Report 10404572 (Version 3)
Quarter: 2014Q3

REPORT INFORMATION
  Report Type: Spontaneous
  Country: US (occurrence: None)
  Receive Date: 20140530
  Receipt Date: 20140821
  Transmission Date: 20150326
  Serious: Yes (Life-Threatening)
  Sender: FDA-Public Use
  Company Number: 1713747-2014-99971

PATIENT
  Age: 48 Year
  Sex: Male
  Weight: 136 kg

DRUGS (18)
  1. CLONIDINE. [Concomitant]
     Active Substance: CLONIDINE
  2. HYDROCODONE ACETAMINOPHEN [Concomitant]
     Active Substance: ACETAMINOPHEN\HYDROCODONE BITARTRATE
  3. TOPRAL-XL [Concomitant]
  4. GLYBURIDE. [Concomitant]
     Active Substance: GLYBURIDE
  5. LEVEMIR [Concomitant]
     Active Substance: INSULIN DETEMIR
  6. NORCO [Concomitant]
     Active Substance: ACETAMINOPHEN\HYDROCODONE BITARTRATE
  7. GABEPENTIN [Concomitant]
  8. ASPIRIN. [Concomitant]
     Active Substance: ASPIRIN
  9. AMLODIPINE [Concomitant]
     Active Substance: AMLODIPINE BESYLATE
  10. OSCAL D [Concomitant]
     Active Substance: CALCIUM CARBONATE\CHOLECALCIFEROL
  11. NEURONTIN [Concomitant]
     Active Substance: GABAPENTIN
  12. DELFLEX [Suspect]
     Active Substance: CALCIUM CHLORIDE\DEXTROSE MONOHYDRATE\MAGNESIUM CHLORIDE\SODIUM CHLORIDE\SODIUM LACTATE
     Indication: PERITONEAL DIALYSIS
     Route: 033
  13. LIBERTY CYCLER [Concomitant]
     Active Substance: DEVICE
  14. CALCIUM CITRATE [Concomitant]
     Active Substance: CALCIUM CITRATE
  15. FUROSEMIDE. [Concomitant]
     Active Substance: FUROSEMIDE
  16. TUBING [Concomitant]
  17. LASIX [Concomitant]
     Active Substance: FUROSEMIDE
  18. METOLAZONE. [Concomitant]
     Active Substance: METOLAZONE

REACTIONS (3)
  - Nausea [None]
  - Pyrexia [None]
  - Peritonitis [None]

NARRATIVE: CASE EVENT DATE: 20140424
